FAERS Safety Report 22082335 (Version 2)
Quarter: 2023Q1

REPORT INFORMATION
  Report Type: Report from Study
  Country: US (occurrence: US)
  Receive Date: 20230310
  Receipt Date: 20230313
  Transmission Date: 20230418
  Serious: No
  Sender: FDA-Public Use
  Company Number: US-BRISTOL-MYERS SQUIBB COMPANY-2023-035384

PATIENT
  Age: 62 Year
  Sex: Female

DRUGS (3)
  1. SOTYKTU [Suspect]
     Active Substance: DEUCRAVACITINIB
     Indication: Psoriasis
     Route: 048
     Dates: start: 20230123
  2. SYNTHROID [Concomitant]
     Active Substance: LEVOTHYROXINE SODIUM
     Indication: Product used for unknown indication
  3. ERGOCALCIFEROL [Concomitant]
     Active Substance: ERGOCALCIFEROL
     Indication: Product used for unknown indication

REACTIONS (5)
  - Sinusitis [Unknown]
  - Aphthous ulcer [Unknown]
  - Tooth disorder [Unknown]
  - Swelling face [Unknown]
  - Pharyngitis [Unknown]

NARRATIVE: CASE EVENT DATE: 20230207
